FAERS Safety Report 18375658 (Version 2)
Quarter: 2022Q1

REPORT INFORMATION
  Report Type: Spontaneous
  Country: AU (occurrence: None)
  Receive Date: 20201013
  Receipt Date: 20220225
  Transmission Date: 20220423
  Serious: Yes (Death, Hospitalization, Other)
  Sender: FDA-Public Use
  Company Number: AU-ROCHE-2692153

PATIENT
  Age: 65 Year
  Sex: Female
  Weight: 88 kg

DRUGS (1)
  1. KADCYLA [Suspect]
     Active Substance: ADO-TRASTUZUMAB EMTANSINE
     Indication: HER2 positive breast cancer
     Route: 042
     Dates: start: 20200327, end: 20200910

REACTIONS (7)
  - Renal tubular injury [Recovered/Resolved]
  - Renal tubular atrophy [Unknown]
  - Blood creatinine increased [Recovering/Resolving]
  - Disease progression [Unknown]
  - Performance status decreased [Unknown]
  - Death [Fatal]
  - Urinary tract infection [Unknown]

NARRATIVE: CASE EVENT DATE: 20200921
